FAERS Safety Report 8334338-2 (Version None)
Quarter: 2012Q2

REPORT INFORMATION
  Report Type: 
  Country: None (occurrence: None)
  Receive Date: 20120503
  Receipt Date: 20120419
  Transmission Date: 20120825
  Serious: Yes (Hospitalization, Other)
  Sender: FDA-Public Use
  Company Number: JP-ROCHE-726482

PATIENT
  Sex: Female

DRUGS (107)
  1. PREDNISOLONE [Suspect]
     Route: 048
     Dates: start: 20110608, end: 20111106
  2. PREDNISOLONE [Suspect]
     Route: 048
     Dates: start: 20111107, end: 20111127
  3. KALIMATE [Concomitant]
     Indication: RENAL FAILURE
     Dosage: DOSE FORM REPORTED AS POR
     Route: 048
     Dates: start: 20100714, end: 20100805
  4. LASIX [Concomitant]
     Route: 042
     Dates: start: 20100705, end: 20100722
  5. LORAZEPAM [Concomitant]
     Route: 048
     Dates: start: 20110608, end: 20110614
  6. RISPERDAL [Concomitant]
     Route: 048
     Dates: start: 20100921, end: 20100922
  7. MAGMITT [Concomitant]
     Indication: CONSTIPATION
     Route: 048
     Dates: start: 20100921, end: 20110515
  8. ALDACTONE [Concomitant]
     Dosage: DOSE FORM: PERORAL AGENT
     Route: 054
     Dates: start: 20101005, end: 20101104
  9. ACTEMRA [Suspect]
     Route: 041
     Dates: start: 20100922, end: 20101020
  10. ACTEMRA [Suspect]
     Route: 041
     Dates: start: 20101117, end: 20110630
  11. PREDNISOLONE AND PREDNISOLONE ACETATE AND PREDNISOLONE SODIUM SUCCINAT [Suspect]
     Route: 041
     Dates: start: 20100806, end: 20100810
  12. ALBUMINAR [Concomitant]
     Indication: CASTLEMAN'S DISEASE
     Dosage: ROUTE: INTRAVENOUS (NOT OTHERWISE SPECIFIED)
     Route: 042
     Dates: start: 20100715, end: 20100718
  13. LEVOFLOXACIN [Concomitant]
     Route: 048
     Dates: start: 20100806, end: 20100806
  14. LASIX [Concomitant]
     Route: 042
     Dates: start: 20100921, end: 20100928
  15. LASIX [Concomitant]
     Route: 042
     Dates: start: 20100714, end: 20100714
  16. LENDORMIN [Concomitant]
     Route: 048
     Dates: start: 20100902, end: 20100903
  17. PYRINAZIN [Concomitant]
     Indication: CASTLEMAN'S DISEASE
     Route: 048
     Dates: start: 20100707, end: 20110628
  18. PROCHLORPERAZINE [Concomitant]
     Indication: PROPHYLAXIS
     Route: 048
     Dates: start: 20101016, end: 20101227
  19. FENTANYL-100 [Concomitant]
     Dosage: DOSE FORM: TAPE, 2.1MG24.2MG
     Route: 062
  20. POTASSIUM L-ASPARTATE [Concomitant]
     Route: 042
     Dates: start: 20100823, end: 20100829
  21. HEPARIN SODIUM [Concomitant]
     Route: 042
     Dates: start: 20100907, end: 20100907
  22. PRORENAL [Concomitant]
     Route: 048
  23. PREDNISOLONE [Suspect]
     Route: 048
     Dates: start: 20110601, end: 20110607
  24. LASIX [Concomitant]
     Route: 042
     Dates: start: 20100919, end: 20100919
  25. LASIX [Concomitant]
     Route: 042
     Dates: start: 20100715, end: 20100715
  26. LASIX [Concomitant]
     Route: 042
     Dates: start: 20101005, end: 20101104
  27. LASIX [Concomitant]
     Route: 042
  28. LENDORMIN [Concomitant]
     Route: 048
     Dates: start: 20100904, end: 20110621
  29. MAGMITT [Concomitant]
     Route: 048
     Dates: start: 20110518, end: 20110610
  30. POTASSIUM L-ASPARTATE [Concomitant]
     Route: 042
     Dates: start: 20100830, end: 20100916
  31. ACTEMRA [Suspect]
     Indication: CASTLEMAN'S DISEASE
     Route: 041
     Dates: start: 20100727, end: 20100914
  32. PREDNISOLONE [Suspect]
     Route: 048
     Dates: start: 20111219, end: 20120115
  33. PREDNISOLONE AND PREDNISOLONE ACETATE AND PREDNISOLONE SODIUM SUCCINAT [Suspect]
     Route: 041
     Dates: start: 20100818, end: 20100824
  34. LEVOFLOXACIN [Concomitant]
     Route: 048
     Dates: start: 20100808, end: 20100808
  35. LASIX [Concomitant]
     Route: 042
     Dates: start: 20100806, end: 20100811
  36. LASIX [Concomitant]
     Route: 042
     Dates: start: 20110525, end: 20110621
  37. LORAZEPAM [Concomitant]
     Indication: INSOMNIA
     Route: 048
     Dates: start: 20100804, end: 20110510
  38. LENDORMIN [Concomitant]
     Route: 048
     Dates: start: 20100828, end: 20100901
  39. RISPERDAL [Concomitant]
     Route: 048
     Dates: start: 20100902, end: 20100902
  40. VALGANCICLOVIR [Concomitant]
     Indication: PROPHYLAXIS
     Route: 048
     Dates: start: 20101115, end: 20101227
  41. HEPARIN SODIUM [Concomitant]
     Route: 042
     Dates: start: 20100908, end: 20100908
  42. GASMOTIN [Concomitant]
     Dates: start: 20110525, end: 20110531
  43. GASMOTIN [Concomitant]
     Dates: start: 20110601, end: 20110614
  44. ACTEMRA [Suspect]
     Route: 041
  45. PREDNISOLONE [Suspect]
     Route: 048
     Dates: start: 20101008, end: 20110510
  46. PREDNISOLONE [Suspect]
     Route: 048
     Dates: start: 20111128, end: 20111228
  47. PREDNISOLONE [Suspect]
     Route: 048
  48. PREDNISOLONE AND PREDNISOLONE ACETATE AND PREDNISOLONE SODIUM SUCCINAT [Suspect]
     Route: 041
     Dates: start: 20100724, end: 20100805
  49. GANCICLOVIR [Suspect]
     Indication: PRODUCT USED FOR UNKNOWN INDICATION
     Dates: start: 20100810
  50. FLUCONAZOLE [Concomitant]
     Indication: PROPHYLAXIS
     Route: 048
     Dates: start: 20100713, end: 20101226
  51. BACTRIM [Concomitant]
     Route: 048
  52. RABEPRAZOLE SODIUM [Concomitant]
     Indication: PROPHYLAXIS
     Route: 048
  53. ALBUMINAR [Concomitant]
     Route: 042
     Dates: start: 20100720, end: 20100720
  54. ALBUMINAR [Concomitant]
     Route: 042
     Dates: start: 20100726, end: 20100726
  55. ALBUMINAR [Concomitant]
     Route: 042
     Dates: start: 20100920, end: 20100920
  56. ALBUMINAR [Concomitant]
     Route: 042
     Dates: start: 20100929, end: 20100929
  57. LEVOFLOXACIN [Concomitant]
     Route: 048
     Dates: start: 20100810, end: 20100815
  58. ALBUMIN TANNATE [Concomitant]
     Route: 048
     Dates: start: 20100806, end: 20100909
  59. LASIX [Concomitant]
     Route: 042
     Dates: start: 20100908, end: 20100913
  60. RISPERDAL [Concomitant]
     Route: 048
  61. HEPARIN SODIUM [Concomitant]
     Route: 042
     Dates: start: 20100815, end: 20100815
  62. HEPARIN SODIUM [Concomitant]
     Route: 042
     Dates: start: 20100821, end: 20100901
  63. PURSENNID [Concomitant]
     Indication: CONSTIPATION
     Dosage: AS NEEDED
     Route: 048
     Dates: start: 20110411, end: 20110411
  64. CEFAZOLIN [Concomitant]
     Indication: PROPHYLAXIS
     Route: 042
     Dates: start: 20110314, end: 20110321
  65. ACTEMRA [Suspect]
     Route: 041
     Dates: start: 20101104, end: 20101104
  66. PREDNISOLONE [Suspect]
     Route: 048
     Dates: start: 20100903, end: 20100909
  67. PREDNISOLONE [Suspect]
     Route: 048
     Dates: start: 20100910, end: 20101007
  68. PREDNISOLONE [Suspect]
     Route: 048
     Dates: start: 20110511, end: 20110531
  69. PREDNISOLONE AND PREDNISOLONE ACETATE AND PREDNISOLONE SODIUM SUCCINAT [Suspect]
     Indication: CASTLEMAN'S DISEASE
     Route: 041
     Dates: start: 20100718, end: 20100721
  70. PREDNISOLONE AND PREDNISOLONE ACETATE AND PREDNISOLONE SODIUM SUCCINAT [Suspect]
     Route: 041
     Dates: start: 20100811, end: 20100817
  71. METHYLPREDNISOLONE SODIUM SUCCINATE [Suspect]
     Indication: CASTLEMAN'S DISEASE
     Route: 042
     Dates: start: 20100721, end: 20100723
  72. ALLOPURINOL [Concomitant]
     Indication: HYPERURICAEMIA
     Route: 048
     Dates: start: 20100714, end: 20101109
  73. MORPHINE [Concomitant]
     Indication: CASTLEMAN'S DISEASE
     Dosage: DOSE FORM REPORTED AS PERORAL LIQUID PREPARATION
     Route: 048
     Dates: start: 20100716, end: 20101227
  74. LASIX [Concomitant]
     Route: 042
     Dates: start: 20100812, end: 20100812
  75. LASIX [Concomitant]
     Route: 042
     Dates: start: 20100813, end: 20100830
  76. LENDORMIN [Concomitant]
     Indication: INSOMNIA
     Route: 048
     Dates: start: 20100819, end: 20100826
  77. RISPERDAL [Concomitant]
     Route: 048
     Dates: start: 20100903, end: 20100909
  78. RISPERDAL [Concomitant]
     Route: 048
     Dates: start: 20100913, end: 20100920
  79. RISPERDAL [Concomitant]
     Route: 048
     Dates: start: 20100923, end: 20101111
  80. CYMBALTA [Concomitant]
     Indication: DEPRESSION
     Route: 048
     Dates: start: 20110711
  81. MUCOSTA [Concomitant]
     Dosage: AS NEEDED
     Route: 048
     Dates: start: 20110911, end: 20110930
  82. CEFAZOLIN [Concomitant]
     Route: 042
     Dates: start: 20110511, end: 20110514
  83. GASMOTIN [Concomitant]
     Dates: start: 20110711, end: 20111106
  84. BACTRIM [Concomitant]
     Indication: PROPHYLAXIS
     Route: 048
     Dates: start: 20100713, end: 20100723
  85. TIMOLOL MALEATE [Concomitant]
     Indication: GLAUCOMA
     Dosage: DOSING AMOUNT REPORTED AS 1GTT
     Route: 047
     Dates: start: 20100629, end: 20110830
  86. ALBUMINAR [Concomitant]
     Route: 042
     Dates: start: 20100722, end: 20100724
  87. LASIX [Concomitant]
     Route: 042
     Dates: start: 20100831, end: 20100907
  88. LASIX [Concomitant]
     Route: 042
     Dates: start: 20100930, end: 20101001
  89. LORAZEPAM [Concomitant]
     Route: 048
     Dates: start: 20110511, end: 20110607
  90. ACYCLOVIR [Concomitant]
     Indication: PROPHYLAXIS
     Route: 048
  91. POSTERISAN [Concomitant]
     Indication: HAEMORRHOIDS
     Dosage: PROPER QUANTI
     Route: 061
     Dates: start: 20100629, end: 20100831
  92. MAGMITT [Concomitant]
     Route: 048
     Dates: start: 20110611, end: 20111106
  93. ATARAX [Concomitant]
     Route: 040
     Dates: start: 20100816, end: 20100819
  94. PURSENNID [Concomitant]
     Dosage: AS NEEDED
     Route: 048
     Dates: start: 20110708
  95. PREDNISOLONE [Suspect]
     Indication: CASTLEMAN'S DISEASE
     Route: 048
     Dates: start: 20100713, end: 20100722
  96. PREDNISOLONE [Suspect]
     Route: 048
     Dates: start: 20100824, end: 20100902
  97. GANCICLOVIR [Suspect]
     Dates: start: 20100813
  98. GANCICLOVIR [Suspect]
     Dates: start: 20100816
  99. LAXOBERON [Concomitant]
     Indication: CONSTIPATION
     Dosage: DOSE FORM REPORTED AS PERORAL LIQUID PREPARATION
     Route: 048
     Dates: start: 20100801, end: 20100802
  100. LASIX [Concomitant]
     Indication: RENAL FAILURE
     Route: 042
     Dates: start: 20100805, end: 20100805
  101. ASPIRIN [Concomitant]
     Indication: PROPHYLAXIS
     Route: 048
  102. HEPARIN SODIUM [Concomitant]
     Route: 042
     Dates: start: 20100717, end: 20100810
  103. HEPARIN SODIUM [Concomitant]
     Route: 042
     Dates: start: 20100903, end: 20100906
  104. PURSENNID [Concomitant]
     Dosage: AS NEEDED
     Route: 048
     Dates: start: 20110505, end: 20110505
  105. MUCOSTA [Concomitant]
     Indication: PROPHYLAXIS
     Dosage: AS NEEDED
     Route: 048
     Dates: start: 20110615, end: 20110630
  106. CEFAZOLIN [Concomitant]
     Route: 042
     Dates: start: 20110502, end: 20110504
  107. GASMOTIN [Concomitant]
     Dates: start: 20110616, end: 20110630

REACTIONS (8)
  - CYTOMEGALOVIRUS INFECTION [None]
  - URINARY TRACT INFECTION [None]
  - CALCIPHYLAXIS [None]
  - CEREBRAL INFARCTION [None]
  - INFECTED SKIN ULCER [None]
  - WHITE BLOOD CELL COUNT DECREASED [None]
  - DEPRESSION [None]
  - NEUTROPHIL COUNT INCREASED [None]
